FAERS Safety Report 12656908 (Version 1)
Quarter: 2016Q3

REPORT INFORMATION
  Report Type: Spontaneous
  Country: US (occurrence: US)
  Receive Date: 20160816
  Receipt Date: 20160816
  Transmission Date: 20161109
  Serious: No
  Sender: FDA-Public Use
  Company Number: US-PERRIGO-16US015714

PATIENT
  Age: 87 Year
  Sex: Female
  Weight: 105.5 kg

DRUGS (5)
  1. LORATADINE. [Suspect]
     Active Substance: LORATADINE
     Indication: LACRIMATION INCREASED
  2. SYNTHROID [Concomitant]
     Active Substance: LEVOTHYROXINE SODIUM
     Indication: HYPOTHYROIDISM
     Dosage: UNK
     Route: 065
     Dates: start: 1986
  3. LORATADINE. [Suspect]
     Active Substance: LORATADINE
     Indication: COUGH
  4. LORATADINE. [Suspect]
     Active Substance: LORATADINE
     Indication: HYPERSENSITIVITY
     Dosage: 10 MG, QD
     Route: 048
     Dates: start: 20160418, end: 20160427
  5. LORATADINE. [Suspect]
     Active Substance: LORATADINE
     Indication: NASAL CONGESTION

REACTIONS (4)
  - Somnolence [Recovering/Resolving]
  - Off label use [Recovered/Resolved]
  - Lethargy [Recovering/Resolving]
  - Tinnitus [Not Recovered/Not Resolved]

NARRATIVE: CASE EVENT DATE: 20160418
